FAERS Safety Report 8764090 (Version 3)
Quarter: 2012Q4

REPORT INFORMATION
  Report Type: 
  Country: DE (occurrence: DE)
  Receive Date: 20120830
  Receipt Date: 20120912
  Transmission Date: 20130627
  Serious: Yes (Hospitalization)
  Sender: FDA-Public Use
  Company Number: DE-PFIZER INC-2012212813

PATIENT
  Age: 50 Year
  Sex: Female

DRUGS (1)
  1. DELIX [Suspect]
     Indication: HYPERTENSION
     Dosage: 5 mg, 1x/day
     Route: 048
     Dates: start: 20110301, end: 20110903

REACTIONS (4)
  - Angioedema [Recovered/Resolved]
  - Upper airway obstruction [Recovered/Resolved]
  - Suffocation feeling [Recovered/Resolved]
  - Dyspnoea [Recovered/Resolved]
